FAERS Safety Report 6348391-9 (Version None)
Quarter: 2009Q3

REPORT INFORMATION
  Report Type: 
  Country: None (occurrence: None)
  Receive Date: 20090911
  Receipt Date: 20080123
  Transmission Date: 20100115
  Serious: Yes (Other)
  Sender: FDA-Public Use
  Company Number: US-ASTRAZENECA-2007UW15777

PATIENT
  Age: 14599 Day
  Sex: Female
  Weight: 74.4 kg

DRUGS (24)
  1. SEROQUEL [Suspect]
     Indication: BIPOLAR DISORDER
     Dates: start: 19970101, end: 20010301
  2. SEROQUEL [Suspect]
     Indication: DEPRESSION
     Dates: start: 19970101, end: 20010301
  3. SEROQUEL [Suspect]
     Indication: STRESS
     Dates: start: 19970101, end: 20010301
  4. SEROQUEL [Suspect]
     Route: 048
     Dates: start: 20010118, end: 20020103
  5. SEROQUEL [Suspect]
     Route: 048
     Dates: start: 20010118, end: 20020103
  6. SEROQUEL [Suspect]
     Route: 048
     Dates: start: 20010118, end: 20020103
  7. SEROQUEL [Suspect]
     Dosage: 25-100 MG
     Route: 048
     Dates: start: 20021022
  8. SEROQUEL [Suspect]
     Dosage: 25-100 MG
     Route: 048
     Dates: start: 20021022
  9. SEROQUEL [Suspect]
     Dosage: 25-100 MG
     Route: 048
     Dates: start: 20021022
  10. ZYPREXA [Concomitant]
  11. RISPERDAL [Concomitant]
     Dates: start: 19980101, end: 20010101
  12. PRILOSEC [Concomitant]
     Dates: start: 19980527
  13. ZESTRIL [Concomitant]
     Dates: start: 20020213
  14. PROZAC [Concomitant]
     Dates: start: 20040804
  15. NEURONTIN [Concomitant]
     Dosage: 300-900 MG
     Dates: start: 20020213
  16. DURAGESIC-100 [Concomitant]
     Dosage: 50 MCG EVERY 72 HOURS
     Dates: start: 20000213
  17. KLONOPIN [Concomitant]
     Indication: STRESS
     Dates: start: 20000213
  18. NEXIUM [Concomitant]
     Dates: start: 19980527
  19. PLAVIX [Concomitant]
     Dates: start: 19980527
  20. COMBIVENT [Concomitant]
     Dosage: 2 PUFFS
     Dates: start: 20020213
  21. ACTOS [Concomitant]
     Indication: DIABETES MELLITUS INADEQUATE CONTROL
     Dates: start: 20020213
  22. METHAZOLAMIDE [Concomitant]
     Indication: GLAUCOMA
     Dates: start: 19980709
  23. SERZONE [Concomitant]
     Dates: start: 19980527
  24. AMBIEN [Concomitant]
     Indication: INSOMNIA
     Dates: start: 20020115

REACTIONS (9)
  - DIABETES MELLITUS INADEQUATE CONTROL [None]
  - DIABETIC GASTROPARESIS [None]
  - DIABETIC GASTROPATHY [None]
  - DIABETIC KETOACIDOSIS [None]
  - HYPERGLYCAEMIA [None]
  - HYPOGLYCAEMIA [None]
  - NEUROPATHY PERIPHERAL [None]
  - TYPE 1 DIABETES MELLITUS [None]
  - TYPE 2 DIABETES MELLITUS [None]
